FAERS Safety Report 7012213-3 (Version None)
Quarter: 2010Q3

REPORT INFORMATION
  Report Type: 
  Country: None (occurrence: None)
  Receive Date: 20100924
  Receipt Date: 20100914
  Transmission Date: 20110219
  Serious: Yes (Other)
  Sender: FDA-Public Use
  Company Number: CA-JNJFOC-20100905344

PATIENT
  Sex: Female
  Weight: 41.5 kg

DRUGS (23)
  1. REMICADE [Suspect]
     Indication: RHEUMATOID ARTHRITIS
     Dosage: 74TH INFUSION
     Route: 042
  2. REMICADE [Suspect]
     Route: 042
  3. METHOTREXATE [Concomitant]
  4. ATIVAN [Concomitant]
  5. NIACIN [Concomitant]
  6. IRON [Concomitant]
  7. IBUPROFEN [Concomitant]
  8. CALCIUM [Concomitant]
  9. ASCORBIC ACID [Concomitant]
  10. VITAMIN D [Concomitant]
  11. NITROGLYCERIN [Concomitant]
  12. FUROSEMIDE [Concomitant]
  13. PLAVIX [Concomitant]
  14. CELEBREX [Concomitant]
  15. SYNTHROID [Concomitant]
  16. FOLIC ACID [Concomitant]
  17. ASPIRIN [Concomitant]
  18. VENTOLIN [Concomitant]
  19. METOPROLOL TARTRATE [Concomitant]
  20. PALAFER [Concomitant]
  21. ACTONEL [Concomitant]
  22. DIGOXIN [Concomitant]
  23. SPIRONOLACTONE [Concomitant]

REACTIONS (2)
  - BONE MARROW DISORDER [None]
  - HAEMOGLOBIN DECREASED [None]
